FAERS Safety Report 10188256 (Version 1)
Quarter: 2014Q2

REPORT INFORMATION
  Report Type: Spontaneous
  Country: GB (occurrence: GB)
  Receive Date: 20140522
  Receipt Date: 20140522
  Transmission Date: 20141212
  Serious: Yes (Hospitalization)
  Sender: FDA-Public Use
  Company Number: GB-TEVA-481360ISR

PATIENT
  Age: 70 Year
  Sex: Female

DRUGS (6)
  1. LEVETIRACETAM [Suspect]
     Indication: PRODUCT USED FOR UNKNOWN INDICATION
     Route: 065
  2. EPILIM [Suspect]
     Indication: PRODUCT USED FOR UNKNOWN INDICATION
     Dosage: 1500 MILLIGRAM DAILY;
     Route: 065
  3. EPILIM [Suspect]
     Indication: PRODUCT USED FOR UNKNOWN INDICATION
     Dosage: 200 MILLIGRAM DAILY;
     Route: 065
  4. EPILIM [Suspect]
     Indication: PRODUCT USED FOR UNKNOWN INDICATION
     Dosage: TOOK 1X500MG EPILIM TWICE A DAY FOR 9 DAYS BEFORE BEING ADMITTED TO HOSPITAL
     Route: 065
  5. CLOBAZAM [Concomitant]
  6. SERTRALINE [Concomitant]
     Dosage: 50 MILLIGRAM DAILY;
     Route: 065

REACTIONS (8)
  - Urinary tract infection [Unknown]
  - Pyrexia [Unknown]
  - Fall [Unknown]
  - Cerebral haemorrhage [Unknown]
  - Asthenia [Unknown]
  - Somnolence [Unknown]
  - Confusional state [Unknown]
  - Accidental overdose [Unknown]
